FAERS Safety Report 15360213 (Version 3)
Quarter: 2022Q1

REPORT INFORMATION
  Report Type: Spontaneous
  Country: US (occurrence: US)
  Receive Date: 20180907
  Receipt Date: 20220331
  Transmission Date: 20220423
  Serious: No
  Sender: FDA-Public Use
  Company Number: US-BIOGEN-2017BI00496784

PATIENT
  Age: 52 Year
  Sex: Female

DRUGS (10)
  1. TECFIDERA [Suspect]
     Active Substance: DIMETHYL FUMARATE
     Indication: Multiple sclerosis
     Route: 050
     Dates: start: 20180126
  2. TECFIDERA [Suspect]
     Active Substance: DIMETHYL FUMARATE
     Route: 048
     Dates: start: 20200821
  3. BACLOFEN [Concomitant]
     Active Substance: BACLOFEN
     Indication: Product used for unknown indication
     Route: 050
  4. ESCITALOPRAM [Concomitant]
     Active Substance: ESCITALOPRAM OXALATE
     Indication: Product used for unknown indication
     Route: 050
  5. LORAZEPAM [Concomitant]
     Active Substance: LORAZEPAM
     Indication: Product used for unknown indication
     Route: 050
  6. TRAMADOL HCL [Concomitant]
     Active Substance: TRAMADOL HYDROCHLORIDE
     Route: 050
  7. ADVIL [Concomitant]
     Active Substance: IBUPROFEN
     Route: 065
  8. LEXAPRO [Concomitant]
     Active Substance: ESCITALOPRAM OXALATE
     Route: 065
  9. VITAMIN D3 [Concomitant]
     Active Substance: CHOLECALCIFEROL
     Route: 065
  10. ZINC SULFATE [Concomitant]
     Active Substance: ZINC SULFATE
     Route: 065

REACTIONS (7)
  - Hyperhidrosis [Unknown]
  - Contusion [Unknown]
  - Fall [Recovered/Resolved]
  - Fatigue [Unknown]
  - Diarrhoea [Unknown]
  - Flushing [Not Recovered/Not Resolved]
  - Hot flush [Unknown]

NARRATIVE: CASE EVENT DATE: 20210901
